FAERS Safety Report 6190103-6 (Version None)
Quarter: 2009Q2

REPORT INFORMATION
  Report Type: 
  Country: None (occurrence: None)
  Receive Date: 20090514
  Receipt Date: 20090504
  Transmission Date: 20091009
  Serious: Yes (Hospitalization)
  Sender: FDA-Public Use
  Company Number: FR-BAXTER-2009BH008044

PATIENT
  Age: 77 Year
  Sex: Female

DRUGS (10)
  1. DEXTROSE 5% [Suspect]
     Indication: DRUG USE FOR UNKNOWN INDICATION
     Route: 042
     Dates: start: 20090306, end: 20090306
  2. SODIUM CHLORIDE 0.9% IN PLASTIC CONTAINER [Suspect]
     Indication: DRUG USE FOR UNKNOWN INDICATION
     Route: 042
     Dates: start: 20090306, end: 20090306
  3. CALCIUM CHLORIDE [Suspect]
     Indication: DRUG USE FOR UNKNOWN INDICATION
     Route: 042
     Dates: start: 20090306, end: 20090306
  4. METHYLPREDNISOLONE 4MG TAB [Suspect]
     Indication: DRUG USE FOR UNKNOWN INDICATION
     Route: 040
     Dates: start: 20090306, end: 20090306
  5. ONDANSETRON, UNSPECIFIED [Suspect]
     Indication: DRUG USE FOR UNKNOWN INDICATION
     Route: 042
     Dates: start: 20090306, end: 20090306
  6. LEUCOVORIN CALCIUM [Suspect]
     Indication: COLON CANCER
     Route: 042
     Dates: start: 20090306, end: 20090306
  7. FLUOROURACIL [Suspect]
     Indication: COLON CANCER
     Route: 040
     Dates: start: 20090306, end: 20090306
  8. ELOXITAN [Suspect]
     Indication: COLON CANCER
     Route: 042
     Dates: start: 20090306, end: 20090306
  9. MAGNESIUM SULFATE (MGSO4) [Suspect]
     Indication: DRUG USE FOR UNKNOWN INDICATION
     Route: 065
     Dates: start: 20090306, end: 20090306
  10. XENETIX (IOBITRIDOL) [Suspect]
     Indication: DIAGNOSTIC PROCEDURE
     Route: 065
     Dates: start: 20090306, end: 20090306

REACTIONS (4)
  - IMPLANT SITE EXTRAVASATION [None]
  - MEDICAL DEVICE PAIN [None]
  - OEDEMA [None]
  - TENDONITIS [None]
